FAERS Safety Report 8022193-X (Version None)
Quarter: 2012Q1

REPORT INFORMATION
  Report Type: 
  Country: None (occurrence: None)
  Receive Date: 20120104
  Receipt Date: 20111222
  Transmission Date: 20120608
  Serious: Yes (Hospitalization, Disabling)
  Sender: FDA-Public Use
  Company Number: DE-TEVA-314915GER

PATIENT
  Age: 75 Year
  Sex: Female
  Weight: 55 kg

DRUGS (10)
  1. MARCUMAR [Concomitant]
  2. AMITRIPTYLIN 25 [Concomitant]
  3. GABAPENTIN [Suspect]
     Indication: NEUROPATHY PERIPHERAL
     Route: 048
     Dates: end: 20110725
  4. OMEPRAZOLE [Concomitant]
     Route: 048
  5. VOTUM PLUS 20/25 [Concomitant]
     Indication: HYPERTENSION
     Dosage: OLMESARTAN  20 MG+ HYDROCHLOROTHIAZIDE 25 MG
     Route: 048
     Dates: end: 20110727
  6. DUROGESIC SMAT 100 UG/H [Concomitant]
  7. OXYGESIC 40 [Concomitant]
  8. SIMVASTATIN [Concomitant]
     Indication: HYPERLIPIDAEMIA
     Route: 048
     Dates: end: 20110727
  9. METOPROLOL 200 [Concomitant]
  10. OLMESARTAN MEDOXOMIL [Concomitant]

REACTIONS (1)
  - RHABDOMYOLYSIS [None]
